FAERS Safety Report 7481767-5 (Version None)
Quarter: 2011Q2

REPORT INFORMATION
  Report Type: 
  Country: None (occurrence: None)
  Receive Date: 20110506
  Receipt Date: 20110502
  Transmission Date: 20111010
  Serious: Yes (Hospitalization)
  Sender: FDA-Public Use
  Company Number: CIP11001077

PATIENT
  Age: 83 Year
  Sex: Male

DRUGS (2)
  1. ACTONEL [Suspect]
     Dosage: 150 MG, ONCE A MONTH, ORAL
     Route: 048
     Dates: start: 20090801
  2. ANTIHYPERTENSIVES [Concomitant]

REACTIONS (7)
  - DYSPHAGIA [None]
  - PAIN [None]
  - HYPOPHAGIA [None]
  - SWOLLEN TONGUE [None]
  - DYSPNOEA [None]
  - GASTRITIS [None]
  - ABDOMINAL DISTENSION [None]
